FAERS Safety Report 16730062 (Version 1)
Quarter: 2019Q3

REPORT INFORMATION
  Report Type: Spontaneous
  Country: DE (occurrence: DE)
  Receive Date: 20190822
  Receipt Date: 20190822
  Transmission Date: 20191005
  Serious: No
  Sender: FDA-Public Use
  Company Number: DE-PACIRA-201700068

PATIENT
  Age: 48 Year
  Sex: Female

DRUGS (5)
  1. TAMOXIFEN [Concomitant]
     Active Substance: TAMOXIFEN
     Indication: INVASIVE LOBULAR BREAST CARCINOMA
     Dosage: UNK UNK, UNK, FREQUENCY : UNK
  2. DEPOCYT [Suspect]
     Active Substance: CYTARABINE
     Indication: METASTASES TO MENINGES
     Dosage: 50 MG EVERY 2 WEEKS
     Route: 037
  3. GOSERELIN [Concomitant]
     Active Substance: GOSERELIN
     Dosage: UNK UNK, UNK, FREQUENCY : UNK
     Route: 065
  4. DENOSUMAB [Concomitant]
     Active Substance: DENOSUMAB
     Dosage: UNK UNK, UNK, FREQUENCY : UNK
     Route: 065
  5. PACLITAXEL. [Suspect]
     Active Substance: PACLITAXEL
     Indication: METASTASES TO MENINGES
     Dosage: UNK UNK, UNK, FREQUENCY : UNK
     Route: 065

REACTIONS (4)
  - Nausea [Unknown]
  - Dizziness [Unknown]
  - Diplopia [Unknown]
  - Headache [Unknown]
